FAERS Safety Report 4952508-8 (Version None)
Quarter: 2006Q1

REPORT INFORMATION
  Report Type: 
  Country: None (occurrence: None)
  Receive Date: 20060317
  Receipt Date: 20060306
  Transmission Date: 20060701
  Serious: Yes (Other)
  Sender: FDA-Public Use
  Company Number: 2006027798

PATIENT
  Age: 19 Year
  Sex: Female
  Weight: 60 kg

DRUGS (1)
  1. DEPO-PROVERA [Suspect]
     Indication: CONTRACEPTION
     Dosage: 150 MG (150 MG, SINGLE INJECTION), INTRAMUSCULAR
     Route: 030
     Dates: start: 20060118, end: 20060118

REACTIONS (5)
  - INJECTION SITE ANAESTHESIA [None]
  - INJECTION SITE HAEMORRHAGE [None]
  - INJECTION SITE INDURATION [None]
  - INJECTION SITE NECROSIS [None]
  - INJECTION SITE ULCER [None]
